FAERS Safety Report 4306887-5 (Version None)
Quarter: 2004Q1

REPORT INFORMATION
  Report Type: 
  Country: None (occurrence: None)
  Receive Date: 20040227
  Receipt Date: 20040217
  Transmission Date: 20041129
  Serious: Yes (Hospitalization)
  Sender: FDA-Public Use
  Company Number: FR-GLAXOSMITHKLINE-B0323683A

PATIENT
  Age: 31 Year
  Sex: Female

DRUGS (13)
  1. SALBUMOL [Suspect]
     Dosage: 2MG PER DAY
     Route: 054
     Dates: start: 20030315, end: 20030323
  2. LOXEN [Suspect]
     Route: 042
     Dates: start: 20030317, end: 20030324
  3. CELESTENE CHRONODOSE [Concomitant]
     Route: 042
  4. SPASFON [Concomitant]
     Route: 042
  5. LEXOMIL [Concomitant]
  6. AUGMENTIN [Concomitant]
     Dates: start: 20030213
  7. CLAFORAN [Concomitant]
     Dates: start: 20030201
  8. ROVAMYCINE [Concomitant]
     Dates: start: 20030201
  9. TARDYFERON [Concomitant]
  10. FOLDINE [Concomitant]
  11. FRAGMIN [Concomitant]
  12. CLAMOXYL [Concomitant]
     Dates: start: 20030317
  13. LOXEN [Concomitant]
     Route: 048
     Dates: start: 20030218, end: 20030219

REACTIONS (21)
  - ANXIETY [None]
  - BLOOD PRESSURE SYSTOLIC DECREASED [None]
  - CAESAREAN SECTION [None]
  - CARDIAC MURMUR [None]
  - CARDIOVASCULAR DISORDER [None]
  - CHEST PAIN [None]
  - COMPLICATIONS OF MATERNAL EXPOSURE TO THERAPEUTIC DRUGS [None]
  - DRUG EXPOSURE DURING PREGNANCY [None]
  - ENTEROCOCCAL INFECTION [None]
  - LUNG DISORDER [None]
  - PAINFUL RESPIRATION [None]
  - PLEURAL EFFUSION [None]
  - PULMONARY HYPERTENSION [None]
  - PYREXIA [None]
  - RALES [None]
  - RESPIRATORY DISTRESS [None]
  - TACHYCARDIA [None]
  - URINARY TRACT INFECTION [None]
  - UTERINE CONTRACTIONS ABNORMAL [None]
  - UTERINE HAEMORRHAGE [None]
  - WHITE BLOOD CELL COUNT INCREASED [None]
